FAERS Safety Report 14110840 (Version 3)
Quarter: 2018Q2

REPORT INFORMATION
  Report Type: Report from Study
  Country: US (occurrence: US)
  Receive Date: 20171020
  Receipt Date: 20180627
  Transmission Date: 20180711
  Serious: Yes (Hospitalization)
  Sender: FDA-Public Use
  Company Number: US-ROCHE-2009562

PATIENT
  Age: 65 Year
  Sex: Male

DRUGS (6)
  1. OBINUTUZUMAB. [Suspect]
     Active Substance: OBINUTUZUMAB
     Indication: DIFFUSE LARGE B-CELL LYMPHOMA
     Dosage: IV ON DAYS 1, 8, AND 15 OF COURSE 1, AND DAY 1 OF COURSES 2-6
     Route: 042
     Dates: start: 20170323, end: 20170923
  2. LENALIDOMIDE [Suspect]
     Active Substance: LENALIDOMIDE
     Indication: DIFFUSE LARGE B-CELL LYMPHOMA
     Dosage: ON DAYS 1-21
     Route: 048
     Dates: start: 20170323
  3. LENALIDOMIDE [Suspect]
     Active Substance: LENALIDOMIDE
     Dosage: C301
     Route: 048
     Dates: start: 20170516
  4. LENALIDOMIDE [Suspect]
     Active Substance: LENALIDOMIDE
     Dosage: C5D1
     Route: 048
     Dates: start: 20170816, end: 20180125
  5. VENETOCLAX. [Suspect]
     Active Substance: VENETOCLAX
     Indication: DIFFUSE LARGE B-CELL LYMPHOMA
     Route: 048
     Dates: start: 20170323
  6. VENETOCLAX. [Suspect]
     Active Substance: VENETOCLAX
     Route: 048
     Dates: start: 20170816, end: 20180125

REACTIONS (12)
  - Decreased appetite [Unknown]
  - Dysphagia [Recovered/Resolved]
  - Personality change [Unknown]
  - Lung infection [Recovered/Resolved]
  - Oedema [Unknown]
  - Confusional state [Unknown]
  - Fatigue [Unknown]
  - Urinary tract infection [Recovered/Resolved]
  - Brain abscess [Unknown]
  - Fatigue [Recovering/Resolving]
  - Fall [Unknown]
  - Sepsis [Recovered/Resolved]
